FAERS Safety Report 9832442 (Version 1)
Quarter: 2014Q1

REPORT INFORMATION
  Report Type: Spontaneous
  Country: US (occurrence: US)
  Receive Date: 20140121
  Receipt Date: 20140121
  Transmission Date: 20141002
  Serious: Yes (Other)
  Sender: FDA-Public Use
  Company Number: US-BAYER-2014-006870

PATIENT
  Age: 41 Year
  Sex: Male
  Weight: 79 kg

DRUGS (3)
  1. BRONKAID [Suspect]
     Indication: ASTHMA
     Dosage: 2 DF, TWICE OR THREE TIMES A WEEK
     Route: 048
  2. BRONKAID [Suspect]
     Indication: DEPRESSION
     Dosage: UNK
     Route: 048
     Dates: start: 2010
  3. BRONKAID [Suspect]
     Indication: INSOMNIA

REACTIONS (5)
  - Drug dependence [None]
  - Incorrect dose administered [None]
  - Off label use [None]
  - Somnolence [None]
  - Drug ineffective [None]
